FAERS Safety Report 17693157 (Version 3)
Quarter: 2020Q4

REPORT INFORMATION
  Report Type: Report from Study
  Country: AR (occurrence: AR)
  Receive Date: 20200422
  Receipt Date: 20201112
  Transmission Date: 20210113
  Serious: Yes (Other)
  Sender: FDA-Public Use
  Company Number: NVSC2020AR107279

PATIENT
  Sex: Female

DRUGS (2)
  1. KISQALI [Suspect]
     Active Substance: RIBOCICLIB
     Indication: BREAST CANCER METASTATIC
     Dosage: 600 MG, QD (STOPPED APPROXIMATELY 20 DAYS AGO)
     Route: 048
     Dates: start: 20190919
  2. KISQALI [Suspect]
     Active Substance: RIBOCICLIB
     Dosage: 600 MG, QD
     Route: 065

REACTIONS (6)
  - Haemorrhage [Unknown]
  - Blood disorder [Unknown]
  - Vaginal haemorrhage [Recovering/Resolving]
  - Gait disturbance [Unknown]
  - Fatigue [Recovering/Resolving]
  - Intentional product use issue [Unknown]
